FAERS Safety Report 14545770 (Version 1)
Quarter: 2018Q1

REPORT INFORMATION
  Report Type: Spontaneous
  Country: US (occurrence: US)
  Receive Date: 20180219
  Receipt Date: 20180219
  Transmission Date: 20180509
  Serious: No
  Sender: FDA-Public Use
  Company Number: US-009507513-1802USA006917

PATIENT
  Age: 50 Year
  Sex: Female

DRUGS (1)
  1. BELSOMRA [Suspect]
     Active Substance: SUVOREXANT
     Indication: SLEEP DISORDER
     Dosage: 1 DF, QD, AT NIGHT, BY MOUTH
     Route: 048

REACTIONS (3)
  - Fatigue [Unknown]
  - Abnormal sleep-related event [Unknown]
  - Middle insomnia [Unknown]

NARRATIVE: CASE EVENT DATE: 201802
